FAERS Safety Report 10143932 (Version 1)
Quarter: 2014Q2

REPORT INFORMATION
  Report Type: Spontaneous
  Country: HU (occurrence: HU)
  Receive Date: 20140430
  Receipt Date: 20140430
  Transmission Date: 20141212
  Serious: Yes (Hospitalization)
  Sender: FDA-Public Use
  Company Number: HU-ABBVIE-14P-076-1228482-00

PATIENT
  Age: 37 Year
  Sex: Male
  Weight: 64 kg

DRUGS (4)
  1. HUMIRA [Suspect]
     Indication: CROHN^S DISEASE
     Route: 058
     Dates: start: 20120817, end: 201402
  2. IMURAN [Suspect]
     Indication: PRODUCT USED FOR UNKNOWN INDICATION
     Route: 048
     Dates: start: 2012, end: 201403
  3. ENTOCORT [Concomitant]
     Indication: COLITIS
     Route: 054
     Dates: start: 201312
  4. ENTOCORT [Concomitant]
     Indication: PROCTITIS

REACTIONS (1)
  - Lymphomatoid papulosis [Recovering/Resolving]
